FAERS Safety Report 8936658 (Version 2)
Quarter: 2015Q2

REPORT INFORMATION
  Report Type: Report from Study
  Country: US (occurrence: US)
  Receive Date: 20121130
  Receipt Date: 20150424
  Transmission Date: 20150821
  Serious: Yes (Death)
  Sender: FDA-Public Use
  Company Number: US-ROCHE-1162560

PATIENT
  Sex: Male

DRUGS (5)
  1. NUTROPIN AQ [Suspect]
     Active Substance: SOMATROPIN
     Indication: HYPOPITUITARISM
     Route: 058
     Dates: start: 20021014
  2. NUTROPIN AQ [Suspect]
     Active Substance: SOMATROPIN
     Indication: PITUITARY INFARCTION
  3. NUTROPIN AQ [Suspect]
     Active Substance: SOMATROPIN
     Indication: POSTPARTUM HYPOPITUITARISM
  4. SYNTHROID [Concomitant]
     Active Substance: LEVOTHYROXINE SODIUM
     Route: 065
  5. NUTROPIN AQ [Suspect]
     Active Substance: SOMATROPIN
     Indication: HYPOPITUITARISM

REACTIONS (4)
  - Thermal burn [Fatal]
  - Pyrexia [Unknown]
  - Abnormal behaviour [Unknown]
  - Constipation [Unknown]
